FAERS Safety Report 21162607 (Version 2)
Quarter: 2022Q3

REPORT INFORMATION
  Report Type: Spontaneous
  Country: JP (occurrence: JP)
  Receive Date: 20220802
  Receipt Date: 20220825
  Transmission Date: 20221027
  Serious: Yes (Life-Threatening)
  Sender: FDA-Public Use
  Company Number: JP-MYLANLABS-2022M1082165

PATIENT
  Age: 62 Year
  Sex: Male

DRUGS (2)
  1. EPINEPHRINE [Interacting]
     Active Substance: EPINEPHRINE
     Indication: Anaphylactic reaction
     Dosage: UNK
     Route: 030
     Dates: start: 2022
  2. GLUCAGON [Concomitant]
     Active Substance: GLUCAGON
     Indication: Anaphylactic reaction
     Dosage: UNK
     Route: 042
     Dates: start: 2022

REACTIONS (2)
  - Therapeutic response decreased [Unknown]
  - Drug interaction [Unknown]

NARRATIVE: CASE EVENT DATE: 20220101
